FAERS Safety Report 9565396 (Version 1)
Quarter: 2013Q3

REPORT INFORMATION
  Report Type: Spontaneous
  Country: GB (occurrence: GB)
  Receive Date: 20130930
  Receipt Date: 20130930
  Transmission Date: 20140515
  Serious: Yes (Hospitalization)
  Sender: FDA-Public Use
  Company Number: GB-PFIZER INC-2013274693

PATIENT
  Age: 48 Year
  Sex: Male

DRUGS (1)
  1. ARTHROTEC [Suspect]
     Indication: ARTHRALGIA

REACTIONS (5)
  - Cardiac disorder [Unknown]
  - Hypotension [Unknown]
  - Palpitations [Unknown]
  - Throat tightness [Unknown]
  - Syncope [Unknown]
